FAERS Safety Report 16171801 (Version 1)
Quarter: 2019Q2

REPORT INFORMATION
  Report Type: Report from Study
  Country: None (occurrence: GR)
  Receive Date: 20190408
  Receipt Date: 20190408
  Transmission Date: 20190711
  Serious: Yes (Other)
  Sender: FDA-Public Use
  Company Number: GR-ABBVIE-19S-066-2731809-00

PATIENT
  Sex: Male

DRUGS (5)
  1. REMERON [Concomitant]
     Active Substance: MIRTAZAPINE
     Indication: INSOMNIA
     Route: 048
     Dates: start: 20170407
  2. LYRICA [Concomitant]
     Active Substance: PREGABALIN
     Indication: PRODUCT USED FOR UNKNOWN INDICATION
     Route: 048
  3. PIDOLEN [Concomitant]
     Indication: HYPERTENSION
     Route: 048
  4. DUODOPA [Suspect]
     Active Substance: CARBIDOPA\LEVODOPA
     Indication: PARKINSON^S DISEASE
     Dosage: MD:5.0ML;CD:5.0ML/H(08:00-00:00),CD:3.8ML/H (AT NIGHT);ED:2.5ML, ON A 24H BASIS
     Route: 050
     Dates: start: 20170317
  5. ELCODROP [Concomitant]
     Indication: GASTROINTESTINAL DISORDER PROPHYLAXIS
     Route: 048

REACTIONS (2)
  - Renal cyst [Not Recovered/Not Resolved]
  - Prostatomegaly [Not Recovered/Not Resolved]
